FAERS Safety Report 14392214 (Version 5)
Quarter: 2018Q3

REPORT INFORMATION
  Report Type: Spontaneous
  Country: JP (occurrence: JP)
  Receive Date: 20180116
  Receipt Date: 20180927
  Transmission Date: 20181010
  Serious: Yes (Death)
  Sender: FDA-Public Use
  Company Number: JP-UNITED THERAPEUTICS-UNT-2017-016053

PATIENT
  Age: 25 Year
  Sex: Female
  Weight: 43 kg

DRUGS (20)
  1. REMODULIN [Suspect]
     Active Substance: TREPROSTINIL
     Dosage: 0.002 ?G/KG, CONTINUING
     Route: 058
  2. REMODULIN [Suspect]
     Active Substance: TREPROSTINIL
     Indication: PULMONARY ARTERIAL HYPERTENSION
     Dosage: 1 MCL/HR
     Route: 058
     Dates: start: 20171101
  3. VENTAVIS [Concomitant]
     Active Substance: ILOPROST
     Dosage: UNK
     Dates: start: 20160908, end: 20171231
  4. REMODULIN [Suspect]
     Active Substance: TREPROSTINIL
     Dosage: 17 MCL/HR
     Route: 058
     Dates: start: 20171221
  5. ONETRAM [Suspect]
     Active Substance: TRAMADOL HYDROCHLORIDE
     Indication: PAIN PROPHYLAXIS
     Dosage: 200 MG, QD
     Route: 048
     Dates: start: 20171101, end: 20171102
  6. LANSOPRAZOLE. [Concomitant]
     Active Substance: LANSOPRAZOLE
     Indication: GASTRITIS PROPHYLAXIS
     Dosage: 15 MG, QD
     Route: 048
     Dates: start: 20171101, end: 20171231
  7. OPSUMIT [Concomitant]
     Active Substance: MACITENTAN
     Indication: PULMONARY ARTERIAL HYPERTENSION
     Dosage: 10 MG, QD
     Route: 048
     Dates: start: 20160208, end: 20171231
  8. REMODULIN [Suspect]
     Active Substance: TREPROSTINIL
     Dosage: 15 MCL/HR
     Route: 058
     Dates: start: 20171117
  9. CALONAL [Concomitant]
     Active Substance: ACETAMINOPHEN
     Dosage: MAXIMUM 1800 MG/DAY
     Route: 048
  10. FUROSEMIDE. [Concomitant]
     Active Substance: FUROSEMIDE
     Indication: PULMONARY ARTERIAL HYPERTENSION
     Dosage: 20 MG, Q12H
     Route: 048
     Dates: start: 20110306, end: 20171231
  11. SPIRONOLACTONE. [Concomitant]
     Active Substance: SPIRONOLACTONE
     Indication: PULMONARY ARTERIAL HYPERTENSION
     Dosage: 25 MG, Q12H
     Route: 048
     Dates: start: 20110306
  12. ADCIRCA [Concomitant]
     Active Substance: TADALAFIL
     Indication: PULMONARY ARTERIAL HYPERTENSION
     Dosage: 40 MG, QD
     Route: 048
     Dates: start: 20130211
  13. HALFDIGOXIN [Concomitant]
     Active Substance: DIGOXIN
     Indication: PULMONARY ARTERIAL HYPERTENSION
     Dosage: 0.125 MG, Q12H
     Route: 048
     Dates: start: 20110306, end: 20171231
  14. VENTAVIS [Concomitant]
     Active Substance: ILOPROST
     Indication: PULMONARY ARTERIAL HYPERTENSION
     Dosage: UNK
     Dates: start: 20130530
  15. CALONAL [Concomitant]
     Active Substance: ACETAMINOPHEN
     Dosage: 6 DF, UNK
     Route: 048
  16. CALONAL [Concomitant]
     Active Substance: ACETAMINOPHEN
     Dosage: 200 MG, UNK
     Route: 048
  17. ADCIRCA [Concomitant]
     Active Substance: TADALAFIL
     Dosage: UNK
     Route: 048
     Dates: start: 201509, end: 20171231
  18. ZYPREXA [Concomitant]
     Active Substance: OLANZAPINE
     Indication: PROPHYLAXIS
     Dosage: 2.5 MG, QD
     Route: 048
     Dates: start: 20171101, end: 20171103
  19. REMODULIN [Suspect]
     Active Substance: TREPROSTINIL
     Dosage: 0.018 ?G/KG, CONTINUING
     Route: 058
     Dates: end: 20171231
  20. CALONAL [Concomitant]
     Active Substance: ACETAMINOPHEN
     Indication: PROPHYLAXIS
     Dosage: 2 DF, UNK
     Route: 048

REACTIONS (12)
  - Infusion site pain [Not Recovered/Not Resolved]
  - Asthenia [Unknown]
  - Appetite disorder [Unknown]
  - Depressed mood [Recovered/Resolved]
  - Infusion site erythema [Unknown]
  - Dizziness [Recovered/Resolved]
  - Nausea [Recovered/Resolved]
  - Pulmonary hypertensive crisis [Fatal]
  - Haemoptysis [Fatal]
  - Infusion site warmth [Not Recovered/Not Resolved]
  - Infusion site swelling [Not Recovered/Not Resolved]
  - Somnolence [Recovered/Resolved]

NARRATIVE: CASE EVENT DATE: 201711
